FAERS Safety Report 9402537 (Version 5)
Quarter: 2014Q2

REPORT INFORMATION
  Report Type: Report from Study
  Country: FR (occurrence: FR)
  Receive Date: 20130716
  Receipt Date: 20140428
  Transmission Date: 20141212
  Serious: Yes (Hospitalization, Other)
  Sender: FDA-Public Use
  Company Number: FR-CELGENEUS-056-C5013-13070442

PATIENT
  Age: 76 Year
  Sex: Female
  Weight: 79 kg

DRUGS (17)
  1. THALIDOMIDE [Suspect]
     Indication: PLASMA CELL MYELOMA
     Dosage: 200 MILLIGRAM
     Route: 048
     Dates: start: 20101025, end: 20101205
  2. THALIDOMIDE [Suspect]
     Dosage: 100 MILLIGRAM
     Route: 048
     Dates: start: 20120130, end: 20120311
  3. THALIDOMIDE [Suspect]
     Dosage: 100 MILLIGRAM
     Route: 048
     Dates: start: 20101225, end: 20140211
  4. PREDNISONE [Suspect]
     Indication: PLASMA CELL MYELOMA
     Dosage: 2 MILLIGRAM/KILOGRAM
     Route: 048
     Dates: start: 20101025, end: 20101205
  5. PREDNISONE [Suspect]
     Dosage: 2 MILLIGRAM/KILOGRAM
     Route: 048
     Dates: start: 20120130, end: 20120311
  6. PREDNISONE [Suspect]
     Route: 065
     Dates: start: 20101025, end: 20140211
  7. MELPHALAN [Suspect]
     Indication: PLASMA CELL MYELOMA
     Dosage: .25 MILLIGRAM/KILOGRAM
     Route: 048
     Dates: start: 20101025, end: 20101205
  8. MELPHALAN [Suspect]
     Dosage: .25 MILLIGRAM/KILOGRAM
     Route: 048
     Dates: start: 20120130, end: 20120311
  9. MELPHALAN [Suspect]
     Route: 065
     Dates: start: 20101025, end: 20140211
  10. LYTOS [Concomitant]
     Indication: PROPHYLAXIS
     Dosage: 1040 MILLIGRAM
     Route: 048
     Dates: start: 20101025
  11. LEVOTHYROX [Concomitant]
     Indication: AUTOIMMUNE THYROIDITIS
     Dosage: 175 MICROGRAM
     Route: 048
     Dates: start: 1990
  12. LOXEN [Concomitant]
     Indication: HYPERTENSION
     Dosage: 40 MILLIGRAM
     Route: 048
     Dates: start: 201010
  13. ASPERGIC [Concomitant]
     Indication: THROMBOSIS PROPHYLAXIS
     Dosage: 100 MILLIGRAM
     Route: 048
     Dates: start: 20101025
  14. EFFERALGAN CODEINE [Concomitant]
     Indication: BONE PAIN
     Dosage: 6 TABLET
     Route: 048
     Dates: start: 20100914
  15. GAVISCON [Concomitant]
     Indication: GASTROOESOPHAGEAL REFLUX PROPHYLAXIS
     Dosage: 3 DOSAGE FORMS
     Route: 048
     Dates: start: 20120316
  16. LANSOPRAZOLE [Concomitant]
     Indication: GASTROOESOPHAGEAL REFLUX PROPHYLAXIS
     Dosage: 30 MILLIGRAM
     Route: 048
     Dates: start: 20120316
  17. FORLAX [Concomitant]
     Indication: CONSTIPATION
     Route: 048
     Dates: start: 20101026

REACTIONS (2)
  - Basal cell carcinoma [Recovered/Resolved]
  - Rectal adenocarcinoma [Not Recovered/Not Resolved]
